FAERS Safety Report 7261964-4 (Version None)
Quarter: 2011Q1

REPORT INFORMATION
  Report Type: 
  Country: None (occurrence: None)
  Receive Date: 20110130
  Receipt Date: 20101213
  Transmission Date: 20110831
  Serious: No
  Sender: FDA-Public Use
  Company Number: US-ABBOTT-10P-163-0691164-00

PATIENT
  Age: 56 Year
  Sex: Female

DRUGS (13)
  1. HUMIRA [Suspect]
     Indication: ECZEMA
     Dates: start: 20101211
  2. CELEXA [Concomitant]
     Indication: DEPRESSION
  3. WELLBUTRIN [Concomitant]
     Indication: DEPRESSION
  4. VICODIN ES [Concomitant]
     Indication: BACK PAIN
  5. LOVASTATIN [Concomitant]
     Indication: BLOOD TRIGLYCERIDES INCREASED
  6. VICODIN ES [Concomitant]
     Indication: MUSCULOSKELETAL PAIN
  7. POTASSIUM [Concomitant]
     Indication: PRODUCT USED FOR UNKNOWN INDICATION
  8. VICODIN ES [Concomitant]
     Indication: SARCOIDOSIS
  9. LEVOTHYROXINE SODIUM [Concomitant]
     Indication: HYPOTHYROIDISM
  10. HYDROCHLORTHYAZIDE [Concomitant]
     Indication: SWELLING
  11. ALICLEN SHAMPOO [Concomitant]
     Indication: ECZEMA
  12. FLUTICASONE PROPIONATE [Concomitant]
     Indication: SINUS DISORDER
     Dosage: 2 SPRAYS  EACH NOSTRIL
     Route: 045
  13. ASA [Concomitant]
     Indication: PRODUCT USED FOR UNKNOWN INDICATION

REACTIONS (1)
  - INJECTION SITE PAIN [None]
